FAERS Safety Report 9667848 (Version 1)
Quarter: 2013Q4

REPORT INFORMATION
  Report Type: Report from Study
  Country: MX (occurrence: MX)
  Receive Date: 20131104
  Receipt Date: 20131104
  Transmission Date: 20140711
  Serious: Yes (Other)
  Sender: FDA-Public Use
  Company Number: PHHY2013MX124736

PATIENT
  Age: 73 Year
  Sex: Male

DRUGS (2)
  1. EXFORGE [Suspect]
     Indication: BLOOD PRESSURE MANAGEMENT
     Dosage: 1 DF, (160/5 MG) IN THE NIGHT
     Route: 048
  2. GALVUS MET [Concomitant]
     Dosage: 2 DF, DAILY
     Dates: start: 201108

REACTIONS (3)
  - Infarction [Not Recovered/Not Resolved]
  - Speech disorder [Not Recovered/Not Resolved]
  - Balance disorder [Not Recovered/Not Resolved]
